FAERS Safety Report 19056328 (Version 1)
Quarter: 2021Q1

REPORT INFORMATION
  Report Type: Spontaneous
  Country: US (occurrence: US)
  Receive Date: 20210325
  Receipt Date: 20210325
  Transmission Date: 20210420
  Serious: No
  Sender: FDA-Public Use
  Company Number: None

PATIENT
  Age: 87 Year
  Sex: Female
  Weight: 50.8 kg

DRUGS (10)
  1. BROMINIDINE 0.15% (TIMOLOL 1.5%) [Suspect]
     Active Substance: BRIMONIDINE TARTRATE\TIMOLOL MALEATE
  2. LATANOPROST. [Concomitant]
     Active Substance: LATANOPROST
  3. CLINDAMYCIN HYDROCHLORIDE. [Concomitant]
     Active Substance: CLINDAMYCIN HYDROCHLORIDE
  4. HCTZ [Concomitant]
     Active Substance: HYDROCHLOROTHIAZIDE
  5. CENTRUM SILVER [Concomitant]
     Active Substance: MINERALS\VITAMINS
  6. AMLODOIPINE [Concomitant]
  7. CALCIUM 600 MG WITH VITAMIN D3 [Concomitant]
  8. LISINOPRIL. [Concomitant]
     Active Substance: LISINOPRIL
  9. TYLENOL 8HR ARTRITIC SUPPORT [Concomitant]
  10. CLINDAMYCIN HYDROCHLORIDE. [Concomitant]
     Active Substance: CLINDAMYCIN HYDROCHLORIDE

REACTIONS (6)
  - Dizziness [None]
  - Feeling abnormal [None]
  - Hypotension [None]
  - Dry mouth [None]
  - Somnolence [None]
  - Glassy eyes [None]
